FAERS Safety Report 7562654-0 (Version None)
Quarter: 2011Q2

REPORT INFORMATION
  Report Type: 
  Country: None (occurrence: None)
  Receive Date: 20110525
  Receipt Date: 20110407
  Transmission Date: 20111010
  Serious: No
  Sender: FDA-Public Use
  Company Number: 326329

PATIENT
  Age: 66 Year
  Sex: Female

DRUGS (1)
  1. VICTOZA [Suspect]
     Indication: TYPE 2 DIABETES MELLITUS
     Dosage: 1.2 MG, QD, SUBCUTANEOUS ; 0.6 MG, QD
     Route: 058
     Dates: start: 20110405

REACTIONS (5)
  - REGURGITATION [None]
  - PYREXIA [None]
  - MALAISE [None]
  - DRUG DOSE OMISSION [None]
  - DIARRHOEA [None]
